FAERS Safety Report 25758741 (Version 1)
Quarter: 2025Q3

REPORT INFORMATION
  Report Type: Spontaneous
  Country: US (occurrence: US)
  Receive Date: 20250904
  Receipt Date: 20250904
  Transmission Date: 20251020
  Serious: Yes (Other)
  Sender: RELIANCE GENEMEDIX
  Company Number: US-Reliance-000485

PATIENT
  Age: 71 Year
  Sex: Female

DRUGS (4)
  1. CAPECITABINE [Suspect]
     Active Substance: CAPECITABINE
     Indication: Anal cancer stage II
     Route: 048
  2. MITOMYCIN [Concomitant]
     Active Substance: MITOMYCIN
     Indication: Anal cancer stage II
  3. MITOMYCIN [Concomitant]
     Active Substance: MITOMYCIN
     Indication: Papilloma viral infection
  4. CAPECITABINE [Suspect]
     Active Substance: CAPECITABINE
     Indication: Papilloma viral infection
     Route: 048

REACTIONS (3)
  - Arteriospasm coronary [Unknown]
  - Myocardial infarction [Unknown]
  - Off label use [Unknown]
